FAERS Safety Report 10774743 (Version 2)
Quarter: 2015Q1

REPORT INFORMATION
  Report Type: Spontaneous
  Country: US (occurrence: None)
  Receive Date: 20150206
  Receipt Date: 20150206
  Transmission Date: 20150721
  Serious: Yes (Hospitalization)
  Sender: FDA-Public Use
  Company Number: HYP201407-000049

PATIENT
  Age: 15 Year
  Sex: Male

DRUGS (5)
  1. ZINC /00156502/ (ZINC SULFATE) [Concomitant]
  2. CALCIUM CARBONATE. [Concomitant]
     Active Substance: CALCIUM CARBONATE
  3. MULTIVITAMINES WITH IRON /02170101/ (ASCORBIC ACID, CYANOCOBALAMIN, ERGOCALCIFEROL, FOLIC ACID, IRON, NICOTINAMIDE, PYRIDOXINE HYDROCHLORIDE, RETINOL, RIBOFLAVIN, THIAMINE HYDROCHLORIDE, TOCOPHERYL ACETATE) [Concomitant]
  4. RAVICTI [Suspect]
     Active Substance: GLYCEROL PHENYLBUTYRATE
     Indication: UREA CYCLE ENZYME DEFICIENCY
     Dates: start: 201405
  5. KEPPRA [Concomitant]
     Active Substance: LEVETIRACETAM

REACTIONS (5)
  - Eye movement disorder [None]
  - Dizziness [None]
  - Hyperammonaemic crisis [None]
  - Headache [None]
  - Vomiting [None]

NARRATIVE: CASE EVENT DATE: 201407
